FAERS Safety Report 4784557-7 (Version None)
Quarter: 2005Q3

REPORT INFORMATION
  Report Type: 
  Country: None (occurrence: None)
  Receive Date: 20050930
  Receipt Date: 20050921
  Transmission Date: 20060218
  Serious: Yes (Hospitalization)
  Sender: FDA-Public Use
  Company Number: PHNR2005AU01450

PATIENT
  Age: 43 Year
  Sex: Male
  Weight: 92 kg

DRUGS (4)
  1. ZASTEN [Suspect]
     Indication: ASTHMA
     Route: 048
     Dates: end: 19851219
  2. NUELIN - SLOW RELEASE [Suspect]
     Indication: ASTHMA
     Dosage: 500 MG, QD
     Dates: end: 19851219
  3. ATROVENT [Suspect]
     Indication: ASTHMA
  4. SPRAY-TISH [Suspect]
     Indication: SEASONAL ALLERGY

REACTIONS (8)
  - BIOPSY KIDNEY ABNORMAL [None]
  - BLOOD ALBUMIN DECREASED [None]
  - DIABETIC COMPLICATION [None]
  - GLOMERULONEPHRITIS MEMBRANOUS [None]
  - MALAISE [None]
  - NEPHROTIC SYNDROME [None]
  - OEDEMA [None]
  - WEIGHT INCREASED [None]
